FAERS Safety Report 22091376 (Version 1)
Quarter: 2023Q1

REPORT INFORMATION
  Report Type: Spontaneous
  Country: US (occurrence: US)
  Receive Date: 20230314
  Receipt Date: 20230314
  Transmission Date: 20230418
  Serious: No
  Sender: FDA-Public Use
  Company Number: US-CHIESI-2022CHF06444

PATIENT
  Age: 21 Year
  Sex: Female
  Weight: 49 kg

DRUGS (7)
  1. FERRIPROX [Suspect]
     Active Substance: DEFERIPRONE
     Indication: Haemochromatosis
     Dosage: 5000 MILLIGRAM, QD
     Route: 048
     Dates: start: 202008, end: 20221128
  2. FERRIPROX [Suspect]
     Active Substance: DEFERIPRONE
     Indication: Transfusion
     Dosage: UNK
     Route: 048
     Dates: start: 20200605, end: 202008
  3. FERRIPROX [Suspect]
     Active Substance: DEFERIPRONE
     Indication: Anaemia
  4. FERRIPROX [Suspect]
     Active Substance: DEFERIPRONE
     Indication: Iron overload
  5. FERRIPROX [Suspect]
     Active Substance: DEFERIPRONE
     Indication: Congenital dyserythropoietic anaemia
  6. JADENU [Concomitant]
     Active Substance: DEFERASIROX
     Indication: Product used for unknown indication
     Dosage: 1080 MILLIGRAM, QD
     Route: 048
     Dates: end: 20221128
  7. DESFERAL [Concomitant]
     Active Substance: DEFEROXAMINE MESYLATE
     Indication: Product used for unknown indication
     Dosage: 2500 MILLIGRAM
     Dates: start: 202204, end: 20221119

REACTIONS (3)
  - Maternal exposure during pregnancy [Unknown]
  - Prescribed overdose [Recovered/Resolved]
  - Off label use [Recovered/Resolved]

NARRATIVE: CASE EVENT DATE: 20200801
